FAERS Safety Report 21129546 (Version 2)
Quarter: 2022Q3

REPORT INFORMATION
  Report Type: Report from Study
  Country: US (occurrence: US)
  Receive Date: 20220726
  Receipt Date: 20220806
  Transmission Date: 20221026
  Serious: Yes (Other)
  Sender: FDA-Public Use
  Company Number: US-AUROBINDO-AUR-APL-2022-028650

PATIENT
  Age: 29 Year
  Sex: Female

DRUGS (12)
  1. PREDNISONE [Suspect]
     Active Substance: PREDNISONE
     Indication: Immunosuppressant drug therapy
     Dosage: 12.01 MG/DAY
     Route: 065
  2. PREDNISONE [Suspect]
     Active Substance: PREDNISONE
     Indication: Systemic lupus erythematosus
  3. PREDNISONE [Suspect]
     Active Substance: PREDNISONE
     Indication: Lupus nephritis
  4. AZATHIOPRINE [Suspect]
     Active Substance: AZATHIOPRINE
     Indication: Immunosuppressant drug therapy
     Dosage: UNK
     Route: 065
  5. AZATHIOPRINE [Suspect]
     Active Substance: AZATHIOPRINE
     Indication: Systemic lupus erythematosus
  6. AZATHIOPRINE [Suspect]
     Active Substance: AZATHIOPRINE
     Indication: Lupus nephritis
  7. BELIMUMAB [Suspect]
     Active Substance: BELIMUMAB
     Indication: Immunosuppressant drug therapy
     Dosage: UNK (670?760 MG/MONTH)
     Route: 042
  8. BELIMUMAB [Suspect]
     Active Substance: BELIMUMAB
     Indication: Systemic lupus erythematosus
     Dosage: 200 MILLIGRAM, EVERY WEEK
     Route: 058
  9. BELIMUMAB [Suspect]
     Active Substance: BELIMUMAB
     Indication: Lupus nephritis
  10. THALIDOMIDE [Suspect]
     Active Substance: THALIDOMIDE
     Indication: Immunosuppressant drug therapy
     Dosage: UNK
     Route: 065
  11. THALIDOMIDE [Suspect]
     Active Substance: THALIDOMIDE
     Indication: Systemic lupus erythematosus
  12. THALIDOMIDE [Suspect]
     Active Substance: THALIDOMIDE
     Indication: Lupus nephritis

REACTIONS (6)
  - Meningitis viral [Recovered/Resolved]
  - Staphylococcal bacteraemia [Recovered/Resolved]
  - Ophthalmic herpes zoster [Recovered/Resolved]
  - Upper respiratory tract infection [Recovered/Resolved]
  - Rash [Recovered/Resolved]
  - Oral herpes [Recovered/Resolved]
